FAERS Safety Report 5767375-2 (Version None)
Quarter: 2008Q2

REPORT INFORMATION
  Report Type: 
  Country: None (occurrence: None)
  Receive Date: 20080612
  Receipt Date: 20080530
  Transmission Date: 20081010
  Serious: Yes (Other)
  Sender: FDA-Public Use
  Company Number: B0503483A

PATIENT
  Age: 28 Year
  Sex: Female

DRUGS (5)
  1. ZOFRAN [Suspect]
     Indication: DRUG USE FOR UNKNOWN INDICATION
     Dosage: 4MG PER DAY
     Route: 065
     Dates: start: 20070822, end: 20070822
  2. ACETAMINOPHEN [Suspect]
     Indication: DRUG USE FOR UNKNOWN INDICATION
     Dosage: 1G SEE DOSAGE TEXT
     Route: 065
     Dates: start: 20070822, end: 20070822
  3. CYTOTEC [Suspect]
     Indication: DRUG USE FOR UNKNOWN INDICATION
     Dosage: .8MG PER DAY
     Route: 065
     Dates: start: 20070822, end: 20070822
  4. TRADOLAN [Suspect]
     Indication: DRUG USE FOR UNKNOWN INDICATION
     Dosage: 50MG PER DAY
     Route: 065
     Dates: start: 20070822, end: 20070822
  5. UNKNOWN DRUG [Suspect]
     Indication: DRUG USE FOR UNKNOWN INDICATION
     Dosage: 50MG SEE DOSAGE TEXT
     Route: 065
     Dates: start: 20070822, end: 20070822

REACTIONS (6)
  - ABORTION INDUCED [None]
  - ARTHRALGIA [None]
  - CHILLS [None]
  - DRUG EXPOSURE DURING PREGNANCY [None]
  - PAIN IN EXTREMITY [None]
  - PYREXIA [None]
